FAERS Safety Report 6519329-6 (Version None)
Quarter: 2009Q4

REPORT INFORMATION
  Report Type: 
  Country: None (occurrence: None)
  Receive Date: 20091224
  Receipt Date: 20091224
  Transmission Date: 20100525
  Serious: Yes (Life-Threatening)
  Sender: FDA-Public Use
  Company Number: None

PATIENT
  Age: 60 Year
  Sex: Female

DRUGS (1)
  1. CETUXIMAB [Suspect]
     Dosage: 800 MG ONCE IV
     Route: 042
     Dates: start: 20091001, end: 20091001

REACTIONS (1)
  - ANAPHYLACTIC REACTION [None]
